FAERS Safety Report 12630441 (Version 1)
Quarter: 2016Q3

REPORT INFORMATION
  Report Type: Spontaneous
  Country: US (occurrence: US)
  Receive Date: 20160808
  Receipt Date: 20160808
  Transmission Date: 20161109
  Serious: No
  Sender: FDA-Public Use
  Company Number: US-BEH-2016058948

PATIENT
  Age: 71 Year
  Sex: Female

DRUGS (4)
  1. ANTIBIOTICS [Concomitant]
     Active Substance: UNSPECIFIED INGREDIENT
     Indication: INTRAOPERATIVE CARE
     Route: 065
  2. PAIN RELIEF NOS [Concomitant]
     Active Substance: CAMPHOR (SYNTHETIC)\LEVOMENTHOL\MENTHYL SALICYLATE OR CAMPHOR (SYNTHETIC)\MENTHOL\MENTHYL SALICYLATE OR MENTHOL\MENTHYL SALICYLATE
     Indication: ANALGESIC THERAPY
     Route: 065
  3. CONTRAST BLUE [Concomitant]
     Indication: LYMPHADENECTOMY
     Route: 065
  4. BERINERT [Suspect]
     Active Substance: HUMAN C1-ESTERASE INHIBITOR
     Indication: PREOPERATIVE CARE
     Dosage: UNK
     Route: 065
     Dates: start: 20160208, end: 20160218

REACTIONS (3)
  - Rash [Recovered/Resolved]
  - Chromaturia [Unknown]
  - Faeces discoloured [Unknown]

NARRATIVE: CASE EVENT DATE: 20160209
